FAERS Safety Report 7037410-2 (Version None)
Quarter: 2010Q4

REPORT INFORMATION
  Report Type: 
  Country: None (occurrence: None)
  Receive Date: 20101011
  Receipt Date: 20101004
  Transmission Date: 20110411
  Serious: Yes (Hospitalization, Other)
  Sender: FDA-Public Use
  Company Number: BR-PFIZER INC-2010122104

PATIENT
  Age: 65 Year
  Sex: Female

DRUGS (13)
  1. CHAMPIX [Suspect]
     Indication: NICOTINE DEPENDENCE
     Dosage: UNK
     Route: 048
     Dates: start: 20100820
  2. CHAMPIX [Suspect]
     Indication: TOBACCO USER
     Dosage: 1 MG, 2X/DAY
     Route: 048
     Dates: start: 20100907, end: 20100928
  3. CHAMPIX [Suspect]
     Indication: SMOKING CESSATION THERAPY
  4. MONOCORDIL RETARD [Concomitant]
     Dosage: UNK
     Dates: start: 20090201
  5. PANTOPRAZOLE [Concomitant]
     Dosage: UNK
     Dates: start: 20090201
  6. TICLID [Concomitant]
     Dosage: UNK
     Dates: start: 20090201
  7. DIOVAN HCT [Concomitant]
     Dosage: UNK
  8. LIPITOR [Concomitant]
     Dosage: UNK
  9. VASTAREL [Concomitant]
     Indication: CARDIAC DISORDER
     Dosage: UNK
  10. VASTAREL [Concomitant]
     Indication: BLOOD PRESSURE ABNORMAL
  11. AMITRIPTYLINE HCL [Concomitant]
     Dosage: UNK
     Dates: start: 20090201
  12. BALCOR [Concomitant]
     Dosage: UNK
     Dates: start: 20090201
  13. DIOVAN [Concomitant]
     Dosage: UNK
     Dates: start: 20090201

REACTIONS (4)
  - BLOOD PRESSURE DECREASED [None]
  - BLOOD PRESSURE INCREASED [None]
  - CHEST PAIN [None]
  - CORONARY ARTERY RESTENOSIS [None]
